FAERS Safety Report 11395320 (Version 10)
Quarter: 2018Q4

REPORT INFORMATION
  Report Type: Spontaneous
  Country: US (occurrence: US)
  Receive Date: 20150819
  Receipt Date: 20181223
  Transmission Date: 20190204
  Serious: Yes (Hospitalization)
  Sender: FDA-Public Use
  Company Number: US-ACTELION PHARMACEUTICALS US, INC.-A-NJ2015-120739

PATIENT
  Age: 65 Year
  Sex: Female
  Weight: 75.74 kg

DRUGS (7)
  1. TRACLEER [Suspect]
     Active Substance: BOSENTAN
     Dosage: 125 MG, BID
     Route: 048
  2. ADCIRCA [Concomitant]
     Active Substance: TADALAFIL
  3. OXYGEN. [Concomitant]
     Active Substance: OXYGEN
     Dosage: 4 L/MIN AT NIGHT
  4. TRACLEER [Suspect]
     Active Substance: BOSENTAN
     Indication: PULMONARY ARTERIAL HYPERTENSION
     Dosage: 125 MG, BID
     Route: 048
     Dates: start: 20130806
  5. TREPROSTINIL DIOLAMIN [Suspect]
     Active Substance: TREPROSTINIL DIOLAMINE
     Indication: PRODUCT USED FOR UNKNOWN INDICATION
     Dosage: UNK
     Route: 048
  6. PLAVIX [Suspect]
     Active Substance: CLOPIDOGREL BISULFATE
     Indication: PRODUCT USED FOR UNKNOWN INDICATION
     Dosage: UNK
     Route: 065
     Dates: start: 201602
  7. REMODULIN [Concomitant]
     Active Substance: TREPROSTINIL

REACTIONS (20)
  - Flushing [Unknown]
  - Peripheral swelling [Unknown]
  - Erythema [Unknown]
  - Scleroderma [Unknown]
  - Diarrhoea [Unknown]
  - Dizziness [Unknown]
  - Pulmonary arterial pressure increased [Unknown]
  - Oxygen saturation decreased [Unknown]
  - Nasopharyngitis [Unknown]
  - Skin lesion [Unknown]
  - Headache [Unknown]
  - Nausea [Unknown]
  - Viral infection [Unknown]
  - Vomiting [Unknown]
  - Tinnitus [Unknown]
  - Dyspnoea [Unknown]
  - Weight decreased [Unknown]
  - Condition aggravated [Unknown]
  - Influenza like illness [Unknown]
  - Lymphadenopathy [Unknown]
